FAERS Safety Report 24647410 (Version 20)
Quarter: 2025Q3

REPORT INFORMATION
  Report Type: Report from Study
  Country: GB (occurrence: GB)
  Receive Date: 20241121
  Receipt Date: 20250909
  Transmission Date: 20251020
  Serious: Yes (Hospitalization, Other)
  Sender: AMGEN
  Company Number: GB-AMGEN-GBRSL2024187394

PATIENT
  Age: 79 Year
  Sex: Female

DRUGS (5)
  1. ECULIZUMAB [Suspect]
     Active Substance: ECULIZUMAB
     Indication: Paroxysmal nocturnal haemoglobinuria
     Dosage: 900 MILLIGRAM, Q2WK
     Route: 065
  2. ECULIZUMAB [Suspect]
     Active Substance: ECULIZUMAB
     Route: 065
  3. ECULIZUMAB [Suspect]
     Active Substance: ECULIZUMAB
     Route: 065
  4. DEXTROSE [Concomitant]
     Active Substance: DEXTROSE MONOHYDRATE
     Route: 065
  5. MORPHINE [Concomitant]
     Active Substance: MORPHINE
     Indication: Pain
     Route: 065

REACTIONS (10)
  - Lower respiratory tract infection [Unknown]
  - Respiratory syncytial virus infection [Unknown]
  - Skin lesion [Unknown]
  - Postoperative wound complication [Unknown]
  - Unevaluable event [Unknown]
  - Blood pressure increased [Unknown]
  - Headache [Unknown]
  - Lichen planus [Unknown]
  - Tooth extraction [Unknown]
  - Back pain [Unknown]

NARRATIVE: CASE EVENT DATE: 20240101
